FAERS Safety Report 6835704-4 (Version None)
Quarter: 2010Q3

REPORT INFORMATION
  Report Type: 
  Country: None (occurrence: None)
  Receive Date: 20100712
  Receipt Date: 20100712
  Transmission Date: 20110219
  Serious: Yes (Hospitalization)
  Sender: FDA-Public Use
  Company Number: None

PATIENT
  Sex: Female
  Weight: 109.1354 kg

DRUGS (2)
  1. LEUCOVORIN CALCIUM [Suspect]
     Indication: COLON CANCER
     Dosage: 500 MG/M2 WEEKLY X 6 WKS X 4 IV DRIP
     Route: 041
     Dates: start: 20000526, end: 20001215
  2. FLUOROURACIL [Suspect]
     Dosage: 500 MG/M2 WEEKLY X 6 WKS X4 IV DRIP
     Route: 041
     Dates: start: 20000526, end: 20001215

REACTIONS (1)
  - ENDOMETRIAL CANCER [None]
